FAERS Safety Report 20500416 (Version 1)
Quarter: 2022Q1

REPORT INFORMATION
  Report Type: Spontaneous
  Country: FI (occurrence: FI)
  Receive Date: 20220222
  Receipt Date: 20220222
  Transmission Date: 20220423
  Serious: Yes (Disabling)
  Sender: FDA-Public Use
  Company Number: None

PATIENT
  Age: 59 Year
  Sex: Female

DRUGS (1)
  1. BRINTELLIX [Suspect]
     Active Substance: VORTIOXETINE HYDROBROMIDE
     Indication: Depression
     Dosage: 5 MILLIGRAM, QD
     Route: 048
     Dates: start: 2019

REACTIONS (2)
  - Dizziness [Recovered/Resolved with Sequelae]
  - Visual impairment [Recovered/Resolved with Sequelae]

NARRATIVE: CASE EVENT DATE: 20190101
